FAERS Safety Report 5204108-2 (Version None)
Quarter: 2007Q1

REPORT INFORMATION
  Report Type: 
  Country: None (occurrence: None)
  Receive Date: 20070110
  Receipt Date: 20051128
  Transmission Date: 20070707
  Serious: No
  Sender: FDA-Public Use
  Company Number: US-BRISTOL-MYERS SQUIBB COMPANY-13195987

PATIENT
  Age: 17 Year
  Sex: Male

DRUGS (1)
  1. ABILIFY [Suspect]
     Dosage: ABILIFY: STARTED ON 5MG QD; THEN 10MG QD; THEN 5MG QD; STOPPED AND RESTARTED ON 5MG QD

REACTIONS (2)
  - DROOLING [None]
  - DYSKINESIA [None]
